FAERS Safety Report 8879490 (Version 1)
Quarter: 2012Q4

REPORT INFORMATION
  Report Type: 
  Country: BR (occurrence: BR)
  Receive Date: 20121031
  Receipt Date: 20121031
  Transmission Date: 20130627
  Serious: Yes (Other)
  Sender: FDA-Public Use
  Company Number: BR-ASTRAZENECA-2012SE80840

PATIENT
  Age: 715 Month
  Sex: Male
  Weight: 95 kg

DRUGS (3)
  1. SYMBICORT TURBUHALER [Suspect]
     Indication: ASTHMA
     Dosage: 80/4.5 MCG DAILY
     Route: 055
     Dates: start: 2000, end: 201210
  2. LOSARTAN [Concomitant]
     Indication: HYPERTENSION
     Route: 048
  3. DIURIT [Concomitant]
     Indication: HYPERTENSION
     Route: 048

REACTIONS (2)
  - Testis cancer [Not Recovered/Not Resolved]
  - Dyspnoea [Not Recovered/Not Resolved]
